FAERS Safety Report 10188770 (Version 4)
Quarter: 2014Q2

REPORT INFORMATION
  Report Type: Spontaneous
  Country: US (occurrence: US)
  Receive Date: 20140522
  Receipt Date: 20140619
  Transmission Date: 20141212
  Serious: No
  Sender: FDA-Public Use
  Company Number: US-PFIZER INC-2014137726

PATIENT
  Sex: Female

DRUGS (2)
  1. TOLTERODINE TARTRATE [Suspect]
     Indication: HYPERTONIC BLADDER
     Dosage: 2 MG, 1X/DAY
     Dates: start: 20121010
  2. TOLTERODINE TARTRATE [Suspect]

REACTIONS (1)
  - Drug ineffective [Unknown]
